FAERS Safety Report 19479908 (Version 1)
Quarter: 2021Q3

REPORT INFORMATION
  Report Type: Report from Study
  Country: GB (occurrence: GB)
  Receive Date: 20210701
  Receipt Date: 20210701
  Transmission Date: 20211014
  Serious: Yes (Other)
  Sender: FDA-Public Use
  Company Number: GB-TEVA-2021-GB-1926744

PATIENT
  Sex: Female

DRUGS (1)
  1. AJOVY [Suspect]
     Active Substance: FREMANEZUMAB-VFRM
     Indication: MIGRAINE

REACTIONS (9)
  - Fatigue [Unknown]
  - Dysstasia [Unknown]
  - Palpitations [Unknown]
  - Cluster headache [Unknown]
  - Nausea [Unknown]
  - Migraine [Unknown]
  - Parosmia [Unknown]
  - Gait disturbance [Unknown]
  - Arthralgia [Unknown]
